APPROVED DRUG PRODUCT: EDURANT PED
Active Ingredient: RILPIVIRINE HYDROCHLORIDE
Strength: EQ 2.5MG BASE
Dosage Form/Route: TABLET, FOR SUSPENSION;ORAL
Application: N219016 | Product #001
Applicant: JANSSEN PRODUCTS LP
Approved: Mar 15, 2024 | RLD: Yes | RS: Yes | Type: RX

PATENTS:
Patent 11065198 | Expires: Oct 23, 2037

EXCLUSIVITY:
Code: NP | Date: Mar 15, 2027
Code: PED | Date: Sep 15, 2027